FAERS Safety Report 9643826 (Version 1)
Quarter: 2013Q4

REPORT INFORMATION
  Report Type: Spontaneous
  Country: DE (occurrence: DE)
  Receive Date: 20131024
  Receipt Date: 20131024
  Transmission Date: 20140711
  Serious: Yes (Hospitalization)
  Sender: FDA-Public Use
  Company Number: DE-009507513-1310DEU007802

PATIENT
  Age: 73 Year
  Sex: Female

DRUGS (4)
  1. CANCIDAS [Suspect]
     Indication: CANDIDA SEPSIS
     Dosage: UNK
     Dates: start: 20131016
  2. PANTOPRAZOLE [Concomitant]
  3. TAZOBAC [Concomitant]
  4. LASIX (FUROSEMIDE) [Concomitant]

REACTIONS (2)
  - Liver function test abnormal [Not Recovered/Not Resolved]
  - Wrong technique in drug usage process [Unknown]
